FAERS Safety Report 14055525 (Version 1)
Quarter: 2017Q4

REPORT INFORMATION
  Report Type: Spontaneous
  Country: FR (occurrence: FR)
  Receive Date: 20171006
  Receipt Date: 20171006
  Transmission Date: 20180321
  Serious: Yes (Other)
  Sender: FDA-Public Use
  Company Number: FR-SA-2017SA044435

PATIENT
  Sex: Female

DRUGS (1)
  1. AUBAGIO [Suspect]
     Active Substance: TERIFLUNOMIDE
     Indication: MULTIPLE SCLEROSIS
     Route: 065
     Dates: start: 2016, end: 20170305

REACTIONS (4)
  - Areflexia [Unknown]
  - Dysaesthesia [Unknown]
  - Polyneuropathy [Not Recovered/Not Resolved]
  - Electromyogram abnormal [Not Recovered/Not Resolved]

NARRATIVE: CASE EVENT DATE: 2016
